FAERS Safety Report 7685204-7 (Version None)
Quarter: 2011Q3

REPORT INFORMATION
  Report Type: 
  Country: None (occurrence: None)
  Receive Date: 20110811
  Receipt Date: 20110728
  Transmission Date: 20111222
  Serious: Yes (Hospitalization)
  Sender: FDA-Public Use
  Company Number: 2011AP001516

PATIENT
  Age: 12 Year
  Sex: Female

DRUGS (6)
  1. PREDNISONE [Concomitant]
  2. CLARITHROMYCIN [Suspect]
     Indication: BRONCHITIS
  3. CYCLOSPORINE [Suspect]
     Indication: NEPHROTIC SYNDROME
  4. CYCLOPHOSPHAMIDE [Concomitant]
  5. METHYLPREDNISOLONE [Concomitant]
  6. AZATHIOPRINE [Concomitant]

REACTIONS (8)
  - DISEASE RECURRENCE [None]
  - DRUG LEVEL INCREASED [None]
  - RESPIRATORY TRACT INFECTION [None]
  - BLOOD CHOLESTEROL INCREASED [None]
  - RENAL FAILURE ACUTE [None]
  - NEPHRITIC SYNDROME [None]
  - DRUG INTERACTION [None]
  - BLOOD TRIGLYCERIDES INCREASED [None]
